FAERS Safety Report 8818992 (Version 3)
Quarter: 2014Q2

REPORT INFORMATION
  Report Type: Spontaneous
  Country: TW (occurrence: None)
  Receive Date: 20121003
  Receipt Date: 20140627
  Transmission Date: 20141212
  Serious: Yes (Hospitalization)
  Sender: FDA-Public Use
  Company Number: DSA_59909_2012

PATIENT
  Age: 39 Year
  Sex: Male

DRUGS (3)
  1. 5 FU [Suspect]
     Indication: SQUAMOUS CELL CARCINOMA OF HEAD AND NECK
     Dosage: EVERY CYCLE INTRAVENOUS (NOT OTHERWISE SPECIFIED)
     Dates: start: 20120914
  2. PLATINOL [Suspect]
     Indication: SQUAMOUS CELL CARCINOMA OF HEAD AND NECK
     Dosage: EVERY CYCLE INTRAVENOUS (NOT OTHERWISE SPECIFIED)
     Dates: start: 20120914, end: 20120914
  3. DOCETXEL (DOCETAXEL) [Suspect]
     Indication: SQUAMOUS CELL CARCINOMA OF HEAD AND NECK
     Dosage: EVERY CYCLE INTRAVENOUS (NOT OTHERWISE SPECIFIED)
     Dates: start: 20120914, end: 20120914

REACTIONS (11)
  - Fatigue [None]
  - Abdominal pain upper [None]
  - Constipation [None]
  - Flatulence [None]
  - Oral pain [None]
  - Decreased appetite [None]
  - Blood glucose increased [None]
  - Hypokalaemia [None]
  - Blood lactate dehydrogenase increased [None]
  - Blood sodium decreased [None]
  - Fatigue [None]
